FAERS Safety Report 6479954-8 (Version None)
Quarter: 2009Q4

REPORT INFORMATION
  Report Type: 
  Country: None (occurrence: None)
  Receive Date: 20091208
  Receipt Date: 20091120
  Transmission Date: 20100525
  Serious: Yes (Death)
  Sender: FDA-Public Use
  Company Number: JP-SANOFI-AVENTIS-2009SA003252

PATIENT
  Age: 63 Year
  Sex: Female

DRUGS (7)
  1. PLAVIX [Suspect]
     Route: 048
  2. LANTUS [Suspect]
     Dosage: DOSE:22 UNIT(S)
  3. SOLOSTAR [Suspect]
  4. BLOPRESS [Concomitant]
  5. LIPITOR [Concomitant]
  6. MUCOSTA [Concomitant]
  7. NOVORAPID [Concomitant]
     Dosage: DOSE:24 UNIT(S)

REACTIONS (1)
  - MYOCARDIAL INFARCTION [None]
